FAERS Safety Report 15787552 (Version 1)
Quarter: 2019Q1

REPORT INFORMATION
  Report Type: Spontaneous
  Country: US (occurrence: US)
  Receive Date: 20190103
  Receipt Date: 20190103
  Transmission Date: 20190417
  Serious: No
  Sender: FDA-Public Use
  Company Number: US-PFIZER INC-2019002056

PATIENT
  Age: 56 Year
  Sex: Female
  Weight: 99.79 kg

DRUGS (3)
  1. LYRICA [Suspect]
     Active Substance: PREGABALIN
     Dosage: 75 MG, UNK
  2. LYRICA [Suspect]
     Active Substance: PREGABALIN
     Indication: NERVE INJURY
     Dosage: 50 MG, UNK
  3. LYRICA [Suspect]
     Active Substance: PREGABALIN
     Dosage: 100 MG, 2X/DAY (ONCE IN THE MORNING ONCE IN THE EVENING)
     Route: 048
     Dates: start: 2017

REACTIONS (1)
  - Drug ineffective for unapproved indication [Unknown]

NARRATIVE: CASE EVENT DATE: 2017
